FAERS Safety Report 14917862 (Version 1)
Quarter: 2018Q2

REPORT INFORMATION
  Report Type: Spontaneous
  Country: US (occurrence: US)
  Receive Date: 20180521
  Receipt Date: 20180521
  Transmission Date: 20180711
  Serious: Yes (Other)
  Sender: FDA-Public Use
  Company Number: US-AUROBINDO-AUR-APL-2018-025826

PATIENT
  Age: 24 Year
  Sex: Male

DRUGS (4)
  1. SERTRALINE [Suspect]
     Active Substance: SERTRALINE HYDROCHLORIDE
     Dosage: 100 MILLIGRAM
  2. BACLOFEN INTRATHECAL [Suspect]
     Active Substance: BACLOFEN
     Indication: CRANIOCEREBRAL INJURY
     Dosage: 75.10 MICROGRAM, ONCE A DAY
     Route: 037
  3. SERTRALINE [Suspect]
     Active Substance: SERTRALINE HYDROCHLORIDE
     Indication: CRANIOCEREBRAL INJURY
     Dosage: 50 MILLIGRAM
     Route: 065
  4. BACLOFEN INTRATHECAL [Suspect]
     Active Substance: BACLOFEN
     Dosage: 98.04 MICROGRAM
     Route: 065

REACTIONS (8)
  - Decreased eye contact [Recovered/Resolved]
  - Distractibility [Recovered/Resolved]
  - Tachyphrenia [Recovered/Resolved]
  - Ideas of reference [Recovered/Resolved]
  - Hallucination, auditory [Recovered/Resolved]
  - Tangentiality [Recovered/Resolved]
  - Epileptic psychosis [Recovered/Resolved]
  - Grandiosity [Recovered/Resolved]
